FAERS Safety Report 17050911 (Version 1)
Quarter: 2019Q4

REPORT INFORMATION
  Report Type: Report from Study
  Country: None (occurrence: US)
  Receive Date: 20191120
  Receipt Date: 20191120
  Transmission Date: 20200122
  Serious: Yes (Other)
  Sender: FDA-Public Use
  Company Number: US-ABBVIE-19K-163-2982363-00

PATIENT
  Age: 15 Year
  Sex: Female

DRUGS (1)
  1. HUMIRA [Suspect]
     Active Substance: ADALIMUMAB
     Indication: JUVENILE IDIOPATHIC ARTHRITIS
     Route: 058
     Dates: start: 20191018, end: 20191101

REACTIONS (12)
  - Migraine [Recovered/Resolved]
  - Asthenia [Unknown]
  - Insomnia [Unknown]
  - Fear [Unknown]
  - Frustration tolerance decreased [Unknown]
  - Malaise [Unknown]
  - Back pain [Not Recovered/Not Resolved]
  - Decreased activity [Unknown]
  - Migraine [Recovered/Resolved]
  - Depressed mood [Unknown]
  - Exercise tolerance decreased [Not Recovered/Not Resolved]
  - Pain [Unknown]

NARRATIVE: CASE EVENT DATE: 201910
